FAERS Safety Report 13642168 (Version 1)
Quarter: 2017Q2

REPORT INFORMATION
  Report Type: Spontaneous
  Country: US (occurrence: US)
  Receive Date: 20170612
  Receipt Date: 20170612
  Transmission Date: 20170830
  Serious: No
  Sender: FDA-Public Use
  Company Number: US-AMGEN-USASP2017087217

PATIENT
  Age: 49 Year
  Sex: Female

DRUGS (18)
  1. ENBREL [Suspect]
     Active Substance: ETANERCEPT
     Indication: RHEUMATOID ARTHRITIS
     Dosage: 50 MG, QWK
     Route: 058
  2. PREDNISONE. [Concomitant]
     Active Substance: PREDNISONE
     Dosage: UNK
  3. LIDODERM [Concomitant]
     Active Substance: LIDOCAINE
     Dosage: UNK
  4. METHOTREXATE. [Concomitant]
     Active Substance: METHOTREXATE
     Dosage: UNK
  5. LYRICA [Concomitant]
     Active Substance: PREGABALIN
     Dosage: UNK
  6. NORVASC [Concomitant]
     Active Substance: AMLODIPINE BESYLATE
     Dosage: UNK
  7. MOVANTIK [Concomitant]
     Active Substance: NALOXEGOL OXALATE
     Dosage: UNK
  8. CYMBALTA [Concomitant]
     Active Substance: DULOXETINE HYDROCHLORIDE
     Dosage: UNK
  9. SOLERA [Concomitant]
     Active Substance: CHLORMADINONE ACETATE\ETHINYL ESTRADIOL
     Dosage: UNK
  10. HYDROCHOROTHIAZIDE [Concomitant]
     Active Substance: HYDROCHLOROTHIAZIDE
     Dosage: UNK
  11. BUTRANS [Concomitant]
     Active Substance: BUPRENORPHINE
     Dosage: UNK
  12. LASIX [Concomitant]
     Active Substance: FUROSEMIDE
     Dosage: UNK
  13. GABAPENTIN. [Concomitant]
     Active Substance: GABAPENTIN
     Dosage: UNK
  14. TRAMADOL HCL [Concomitant]
     Active Substance: TRAMADOL HYDROCHLORIDE
     Dosage: UNK
  15. HYDROCODONE/ACETAMINOPHEN [Concomitant]
     Active Substance: ACETAMINOPHEN\HYDROCODONE
     Dosage: UNK
  16. VITAMIN B12 [Concomitant]
     Active Substance: CYANOCOBALAMIN
     Dosage: UNK
  17. XANAX [Concomitant]
     Active Substance: ALPRAZOLAM
     Dosage: UNK
  18. ALBUTEROL. [Concomitant]
     Active Substance: ALBUTEROL
     Dosage: UNK

REACTIONS (2)
  - Loss of personal independence in daily activities [Unknown]
  - Pain [Not Recovered/Not Resolved]
